FAERS Safety Report 4586928-0 (Version None)
Quarter: 2005Q1

REPORT INFORMATION
  Report Type: 
  Country: None (occurrence: None)
  Receive Date: 20050218
  Receipt Date: 20050208
  Transmission Date: 20050727
  Serious: Yes (Other)
  Sender: FDA-Public Use
  Company Number: GB-JNJFOC-20050202281

PATIENT
  Age: 74 Year
  Sex: Female

DRUGS (2)
  1. RISPERDAL [Suspect]
     Indication: PARANOIA
  2. RISPERDAL [Suspect]

REACTIONS (1)
  - BILIARY CIRRHOSIS PRIMARY [None]
